FAERS Safety Report 18235449 (Version 2)
Quarter: 2020Q3

REPORT INFORMATION
  Report Type: Spontaneous
  Country: IE (occurrence: IE)
  Receive Date: 20200905
  Receipt Date: 20200919
  Transmission Date: 20201103
  Serious: Yes (Disabling)
  Sender: FDA-Public Use
  Company Number: IE-ACCORD-199530

PATIENT
  Age: 28 Year
  Sex: Female

DRUGS (1)
  1. RAMIPRIL. [Suspect]
     Active Substance: RAMIPRIL
     Indication: HYPERTENSION
     Route: 048
     Dates: end: 20200813

REACTIONS (6)
  - Restlessness [Unknown]
  - Myalgia [Unknown]
  - Lethargy [Unknown]
  - Weight increased [Unknown]
  - Arthralgia [Unknown]
  - Fatigue [Recovering/Resolving]
